FAERS Safety Report 17199711 (Version 3)
Quarter: 2020Q1

REPORT INFORMATION
  Report Type: Spontaneous
  Country: RU (occurrence: RU)
  Receive Date: 20191226
  Receipt Date: 20200226
  Transmission Date: 20200409
  Serious: Yes (Hospitalization, Other)
  Sender: FDA-Public Use
  Company Number: RU-US-PROVELL PHARMACEUTICALS LLC-9134466

PATIENT
  Age: 48 Year
  Sex: Female
  Weight: 100 kg

DRUGS (9)
  1. EUTHYROX [Suspect]
     Active Substance: LEVOTHYROXINE SODIUM
     Dosage: STOPPED AND DID NOT TAKE FOR 4 MONTHS
     Route: 048
     Dates: start: 2012
  2. EUTHYROX [Suspect]
     Active Substance: LEVOTHYROXINE SODIUM
     Route: 048
     Dates: start: 2018
  3. EUTHYROX [Suspect]
     Active Substance: LEVOTHYROXINE SODIUM
     Dosage: SUMMER OF 2016, DOSE REDUCED
     Route: 048
     Dates: start: 2016
  4. EUTHYROX [Suspect]
     Active Substance: LEVOTHYROXINE SODIUM
     Dosage: BROKE OFF PART OF THE TABLET AND TOOK 85 MCG FROM 88 MCG (DOSE REDUCED)
     Route: 048
     Dates: start: 201902
  5. EUTHYROX [Suspect]
     Active Substance: LEVOTHYROXINE SODIUM
     Route: 048
     Dates: start: 2017
  6. EUTHYROX [Suspect]
     Active Substance: LEVOTHYROXINE SODIUM
     Indication: HYPOTHYROIDISM
     Route: 048
     Dates: start: 2012
  7. VINPOCETINE [Concomitant]
     Active Substance: VINPOCETINE
     Indication: ANGIOPATHY
     Dates: start: 2014
  8. EUTHYROX [Suspect]
     Active Substance: LEVOTHYROXINE SODIUM
     Dosage: SUMMER OF 2014, CONTINUED EUTHYROX 50
     Route: 048
     Dates: start: 2014
  9. EUTHYROX [Suspect]
     Active Substance: LEVOTHYROXINE SODIUM
     Dosage: SUMMER OF 2016, DOSE INCREASED
     Route: 048
     Dates: start: 2016

REACTIONS (28)
  - Optic ischaemic neuropathy [Unknown]
  - External hydrocephalus [Unknown]
  - Neck pain [Unknown]
  - Lymphostasis [Unknown]
  - Central nervous system lesion [Unknown]
  - Vascular encephalopathy [Unknown]
  - Tinnitus [Not Recovered/Not Resolved]
  - Blood uric acid increased [Unknown]
  - Exophthalmos [Unknown]
  - Retinal vascular disorder [Unknown]
  - Dizziness [Not Recovered/Not Resolved]
  - Asphyxia [Recovered/Resolved]
  - Extraocular muscle paresis [Unknown]
  - Blood glucose fluctuation [Unknown]
  - Back pain [Unknown]
  - Tachycardia [Recovered/Resolved]
  - Hyperthyroidism [Unknown]
  - Obesity [Unknown]
  - Dyslipidaemia [Unknown]
  - Endocrine ophthalmopathy [Unknown]
  - Cerebral atrophy [Unknown]
  - Hypothyroidism [Unknown]
  - Malaise [Recovering/Resolving]
  - Wrong technique in product usage process [Unknown]
  - Supraventricular extrasystoles [Unknown]
  - Prothrombin level increased [Unknown]
  - Blood sodium increased [Unknown]
  - Activated partial thromboplastin time shortened [Unknown]

NARRATIVE: CASE EVENT DATE: 2012
